FAERS Safety Report 15620743 (Version 7)
Quarter: 2025Q1

REPORT INFORMATION
  Report Type: Report from Study
  Country: CA (occurrence: CA)
  Receive Date: 20181115
  Receipt Date: 20250218
  Transmission Date: 20250409
  Serious: Yes (Other)
  Sender: TAKEDA
  Company Number: CA-TAKEDA-2018TUS032508

PATIENT
  Age: 78 Year
  Sex: Female

DRUGS (17)
  1. VEDOLIZUMAB [Suspect]
     Active Substance: VEDOLIZUMAB
     Indication: Crohn^s disease
  2. VEDOLIZUMAB [Suspect]
     Active Substance: VEDOLIZUMAB
     Dosage: 300 MILLIGRAM, Q4WEEKS
     Dates: start: 20191113
  3. VEDOLIZUMAB [Suspect]
     Active Substance: VEDOLIZUMAB
     Dosage: 300 MILLIGRAM, Q4WEEKS
  4. VEDOLIZUMAB [Suspect]
     Active Substance: VEDOLIZUMAB
     Dosage: 300 MILLIGRAM, Q4WEEKS
  5. PREDNISONE [Concomitant]
     Active Substance: PREDNISONE
     Indication: Crohn^s disease
  6. VITAMIN D [Concomitant]
     Active Substance: VITAMIN D NOS
     Dosage: UNK UNK, QD
  7. TIAZAC [Concomitant]
     Active Substance: DILTIAZEM HYDROCHLORIDE
     Dosage: 240 MILLIGRAM, QD
  8. TIAZAC [Concomitant]
     Active Substance: DILTIAZEM HYDROCHLORIDE
  9. MYRBETRIQ [Concomitant]
     Active Substance: MIRABEGRON
  10. GLICLAZIDE [Concomitant]
     Active Substance: GLICLAZIDE
     Dosage: 160 MILLIGRAM, BID
     Dates: start: 20200901
  11. INSULIN NOS [Concomitant]
     Active Substance: INSULIN NOS
     Dosage: 12 INTERNATIONAL UNIT, QD
     Dates: start: 20200901
  12. Reactine [Concomitant]
     Dosage: UNK UNK, BID
     Dates: start: 20210201
  13. Reactine [Concomitant]
     Dosage: UNK UNK, BID
     Dates: start: 20211001
  14. HYDROCORTISONE [Concomitant]
     Active Substance: HYDROCORTISONE
     Indication: Eczema
     Route: 061
  15. CARVEDILOL [Concomitant]
     Active Substance: CARVEDILOL
     Indication: Blood pressure abnormal
  16. MINERALS\VITAMINS [Concomitant]
     Active Substance: MINERALS\VITAMINS
     Dosage: UNK UNK, BID
     Dates: start: 20210301
  17. HYDROCHLOROTHIAZIDE [Concomitant]
     Active Substance: HYDROCHLOROTHIAZIDE

REACTIONS (7)
  - Cataract [Unknown]
  - Pneumonia [Recovering/Resolving]
  - Viral infection [Unknown]
  - Off label use [Unknown]
  - Dermatitis allergic [Unknown]
  - Bronchitis [Recovered/Resolved]
  - Cough [Recovering/Resolving]

NARRATIVE: CASE EVENT DATE: 20181001
